FAERS Safety Report 10605687 (Version 2)
Quarter: 2014Q4

REPORT INFORMATION
  Report Type: Spontaneous
  Country: FR (occurrence: FR)
  Receive Date: 20141125
  Receipt Date: 20141201
  Transmission Date: 20150529
  Serious: Yes (Hospitalization)
  Sender: FDA-Public Use
  Company Number: FR-ROCHE-1495725

PATIENT
  Age: 71 Year
  Sex: Female

DRUGS (10)
  1. MABTHERA [Suspect]
     Active Substance: RITUXIMAB
     Indication: DIFFUSE LARGE B-CELL LYMPHOMA STAGE IV
     Dosage: FIRST COURSE
     Route: 042
     Dates: start: 201401
  2. ENDOXAN [Suspect]
     Active Substance: CYCLOPHOSPHAMIDE
     Indication: DIFFUSE LARGE B-CELL LYMPHOMA STAGE IV
     Dosage: FIRST COURSE
     Route: 042
     Dates: start: 201401
  3. ADRIBLASTIN [Suspect]
     Active Substance: DOXORUBICIN HYDROCHLORIDE
     Indication: DIFFUSE LARGE B-CELL LYMPHOMA STAGE IV
     Dosage: FIRST COURSE
     Route: 042
     Dates: start: 201401
  4. ONCOVIN [Suspect]
     Active Substance: VINCRISTINE SULFATE
     Dosage: 8TH COURSE
     Route: 042
     Dates: start: 20140605, end: 20140605
  5. SOLUPRED (FRANCE) [Concomitant]
     Active Substance: PREDNISOLONE
     Route: 048
     Dates: start: 201401
  6. NEULASTA [Concomitant]
     Active Substance: PEGFILGRASTIM
     Dosage: INJECTION FOLLOWING EACH COURSE
     Route: 042
     Dates: start: 201401
  7. ENDOXAN [Suspect]
     Active Substance: CYCLOPHOSPHAMIDE
     Dosage: 8TH COURSE
     Route: 042
     Dates: start: 20140605, end: 20140605
  8. ADRIBLASTIN [Suspect]
     Active Substance: DOXORUBICIN HYDROCHLORIDE
     Dosage: 8TH COURSE
     Route: 042
     Dates: start: 20140605, end: 20140605
  9. MABTHERA [Suspect]
     Active Substance: RITUXIMAB
     Dosage: 8TH COURSE
     Route: 042
     Dates: start: 20140605, end: 20140605
  10. ONCOVIN [Suspect]
     Active Substance: VINCRISTINE SULFATE
     Indication: DIFFUSE LARGE B-CELL LYMPHOMA STAGE IV
     Dosage: FIRST COURSE
     Route: 042
     Dates: start: 201401

REACTIONS (1)
  - Pancytopenia [Recovered/Resolved]

NARRATIVE: CASE EVENT DATE: 20140613
